FAERS Safety Report 9316592 (Version 2)
Quarter: 2013Q2

REPORT INFORMATION
  Report Type: Spontaneous
  Country: US (occurrence: US)
  Receive Date: 20130530
  Receipt Date: 20130604
  Transmission Date: 20140414
  Serious: No
  Sender: FDA-Public Use
  Company Number: US-PFIZER INC-2013137012

PATIENT
  Age: 35 Year
  Sex: Female

DRUGS (12)
  1. EPIPEN [Suspect]
     Indication: HYPERSENSITIVITY
     Dosage: 0.3 MG, PRN
     Route: 030
     Dates: start: 20130414
  2. CETIRIZINE [Concomitant]
     Dosage: 10 MG, QID
     Route: 048
  3. METFORMIN [Concomitant]
     Dosage: 500 MG, 2X/DAY
     Route: 048
  4. PRILOSEC [Concomitant]
     Dosage: 40 MG, 1X/DAY
     Route: 048
  5. WARFARIN [Concomitant]
     Dosage: 5 MG, 1X/DAY
     Route: 048
  6. ATIVAN [Concomitant]
     Dosage: 1 MG, QHS
     Route: 048
  7. SINGULAIR [Concomitant]
     Dosage: 10 MG, QHS
     Route: 048
  8. PROZAC [Concomitant]
     Dosage: 40 MG, 1X/DAY
     Route: 048
  9. DOXEPIN [Concomitant]
     Dosage: 25 MG, QHS
     Route: 048
  10. OXYCODONE [Concomitant]
     Dosage: 10 MG, Q4H PRN
     Route: 048
  11. PRO-AIR [Concomitant]
     Dosage: 2 PUFFS, Q4H
  12. HYDROXYCHLOROQUINE [Concomitant]
     Dosage: 200 MG, 2X/DAY
     Route: 048

REACTIONS (1)
  - No adverse event [Recovered/Resolved]
